FAERS Safety Report 4425686-7 (Version None)
Quarter: 2004Q3

REPORT INFORMATION
  Report Type: 
  Country: None (occurrence: None)
  Receive Date: 20040810
  Receipt Date: 20040727
  Transmission Date: 20050211
  Serious: Yes (Hospitalization)
  Sender: FDA-Public Use
  Company Number: MEDI-0002140

PATIENT
  Age: 67 Year
  Sex: Male
  Weight: 93.441 kg

DRUGS (10)
  1. ETHYOL [Suspect]
     Indication: RADIOTHERAPY
     Dosage: 500 MG, 5 IN 1 WK, SUBCUTANEOUS
     Route: 058
     Dates: start: 20040206, end: 20040218
  2. RADIATION THERAPY [Concomitant]
  3. BUMEX [Concomitant]
  4. IMDUR [Concomitant]
  5. LASIX [Concomitant]
  6. COREG [Concomitant]
  7. PROTONIX [Concomitant]
  8. ASPIRIN [Concomitant]
  9. INSULIN [Concomitant]
  10. ZAROXOLYN [Concomitant]

REACTIONS (1)
  - CARDIAC FAILURE CONGESTIVE [None]
